FAERS Safety Report 17004808 (Version 2)
Quarter: 2019Q4

REPORT INFORMATION
  Report Type: Spontaneous
  Country: KR (occurrence: KR)
  Receive Date: 20191107
  Receipt Date: 20191112
  Transmission Date: 20200122
  Serious: Yes (Hospitalization)
  Sender: FDA-Public Use
  Company Number: KR-009507513-1911KOR000792

PATIENT
  Age: 43 Year
  Sex: Male
  Weight: 66.9 kg

DRUGS (7)
  1. FENTANYL. [Concomitant]
     Active Substance: FENTANYL
     Indication: METASTASES TO CENTRAL NERVOUS SYSTEM
  2. PEMBROLIZUMAB. [Suspect]
     Active Substance: PEMBROLIZUMAB
     Indication: NON-SMALL CELL LUNG CANCER STAGE IV
     Dosage: EVERY 3 WEEKS
     Dates: start: 20180918, end: 20180918
  3. PEMBROLIZUMAB. [Suspect]
     Active Substance: PEMBROLIZUMAB
     Dosage: EVERY 3 WEEKS
     Dates: start: 20181030, end: 20181030
  4. FENTANYL. [Concomitant]
     Active Substance: FENTANYL
     Indication: FLANK PAIN
     Dosage: UNK
     Route: 062
     Dates: start: 2018
  5. FENTANYL. [Concomitant]
     Active Substance: FENTANYL
     Indication: METASTASES TO PLEURA
  6. PEMBROLIZUMAB. [Suspect]
     Active Substance: PEMBROLIZUMAB
     Dosage: EVERY 3 WEEKS
     Dates: start: 20181009, end: 20181009
  7. FENTANYL. [Concomitant]
     Active Substance: FENTANYL
     Indication: METASTASES TO BONE

REACTIONS (2)
  - Arthralgia [Recovering/Resolving]
  - Rash papular [Recovered/Resolved]

NARRATIVE: CASE EVENT DATE: 20180926
